FAERS Safety Report 4808605-0 (Version None)
Quarter: 2005Q4

REPORT INFORMATION
  Report Type: 
  Country: None (occurrence: None)
  Receive Date: 20051025
  Receipt Date: 20050926
  Transmission Date: 20060501
  Serious: Yes (Other)
  Sender: FDA-Public Use
  Company Number: DE-GLAXOSMITHKLINE-D0047586A

PATIENT
  Age: 64 Year
  Sex: Male

DRUGS (7)
  1. AVANDIA [Suspect]
     Indication: INSULIN RESISTANCE
     Route: 065
     Dates: start: 20050906, end: 20050909
  2. HUMINSULIN BASAL [Concomitant]
     Indication: DIABETES MELLITUS
     Route: 065
  3. GLIBENCLAMIDE [Concomitant]
     Dosage: 3.5MG PER DAY
     Route: 065
  4. METFORMIN [Concomitant]
     Dosage: 1000MG TWICE PER DAY
     Route: 065
  5. DICLO KD [Concomitant]
     Route: 065
  6. TORSEMIDE [Concomitant]
     Route: 065
  7. BISOPROLOL [Concomitant]
     Route: 065

REACTIONS (2)
  - DIABETIC ULCER [None]
  - OEDEMA PERIPHERAL [None]
